FAERS Safety Report 9356513 (Version 2)
Quarter: 2013Q4

REPORT INFORMATION
  Report Type: Spontaneous
  Country: US (occurrence: US)
  Receive Date: 20130619
  Receipt Date: 20131120
  Transmission Date: 20140711
  Serious: Yes (Hospitalization)
  Sender: FDA-Public Use
  Company Number: US-B.I. PHARMACEUTICALS,INC./RIDGEFIELD-2013-BI-17206BP

PATIENT
  Sex: Male
  Weight: 105.23 kg

DRUGS (11)
  1. PRADAXA [Suspect]
     Indication: ATRIAL FIBRILLATION
     Dosage: 150 MG
     Dates: start: 20110418, end: 20110511
  2. LEVOTHYROXINE [Concomitant]
     Dosage: 100 MCG
  3. DIGOXIN [Concomitant]
     Dosage: 0.25 MG
  4. TERAZOSIN [Concomitant]
  5. ALPRAZOLAM [Concomitant]
  6. KLOR-CON [Concomitant]
  7. FUROSEMIDE [Concomitant]
  8. PHENERGAN [Concomitant]
  9. BENADRYL [Concomitant]
  10. NITRO [Concomitant]
  11. LORTAB [Concomitant]

REACTIONS (4)
  - Haemorrhage [Unknown]
  - Abdominal discomfort [Unknown]
  - Abdominal pain upper [Unknown]
  - Ecchymosis [Unknown]
